FAERS Safety Report 8563543-5 (Version None)
Quarter: 2012Q3

REPORT INFORMATION
  Report Type: 
  Country: None (occurrence: None)
  Receive Date: 20120803
  Receipt Date: 20120725
  Transmission Date: 20120928
  Serious: Yes (Death, Hospitalization)
  Sender: FDA-Public Use
  Company Number: US-BRISTOL-MYERS SQUIBB COMPANY-14299432

PATIENT
  Age: 45 Year
  Sex: Female

DRUGS (4)
  1. IPILIMUMAB [Suspect]
     Indication: MALIGNANT MELANOMA
     Dosage: 1 DOSAGE FORM : 10MG/KG,475MG, ALSO TOOK 8850 MG
     Route: 042
     Dates: start: 20080506, end: 20120625
  2. LEVOTHYROXINE SODIUM [Concomitant]
     Dates: start: 20101228
  3. XANAX [Concomitant]
     Dates: start: 20080501
  4. PAROXETINE [Concomitant]
     Dates: start: 20120515

REACTIONS (9)
  - CARDIAC ARREST [None]
  - DEHYDRATION [None]
  - GASTROINTESTINAL INFLAMMATION [None]
  - NAUSEA [None]
  - VOMITING [None]
  - ABDOMINAL PAIN [None]
  - DIARRHOEA [None]
  - DEATH [None]
  - DECREASED APPETITE [None]
